FAERS Safety Report 13042290 (Version 1)
Quarter: 2016Q4

REPORT INFORMATION
  Report Type: Spontaneous
  Country: US (occurrence: US)
  Receive Date: 20161219
  Receipt Date: 20161219
  Transmission Date: 20170207
  Serious: No
  Sender: FDA-Public Use
  Company Number: US-CELGENEUS-USA-2016012958

PATIENT
  Sex: Male

DRUGS (2)
  1. REVLIMID [Suspect]
     Active Substance: LENALIDOMIDE
     Dosage: 2.5 MG
     Route: 048
     Dates: start: 201611
  2. REVLIMID [Suspect]
     Active Substance: LENALIDOMIDE
     Indication: PLASMA CELL MYELOMA
     Dosage: 10 MG
     Route: 048
     Dates: start: 201512

REACTIONS (4)
  - Swelling [Unknown]
  - Drug intolerance [Unknown]
  - Constipation [Unknown]
  - Decreased appetite [Unknown]
